FAERS Safety Report 7938560 (Version 4)
Quarter: 2013Q1

REPORT INFORMATION
  Report Type: Spontaneous
  Country: JP (occurrence: None)
  Receive Date: 20110420
  Receipt Date: 20130125
  Transmission Date: 20140127
  Serious: Yes (Hospitalization)
  Sender: FDA-Public Use
  Company Number: DSJ-2011-06655

PATIENT
  Age: 68 Year
  Sex: Male

DRUGS (11)
  1. OLMESARTAN MEDOXOMIL [Suspect]
     Indication: ESSENTIAL HYPERTENSION
     Dosage: 5 MG, PER ORAL
     Route: 048
     Dates: start: 20100930, end: 20110317
  2. LASIX [Suspect]
     Indication: PRODUCT USED FOR UNKNOWN INDICATION
     Dosage: 80 MG
     Dates: end: 20110414
  3. CONIEL (BENIDIPINE HYDROCHLORIDE) (BENIDIPINE HYDROCHLORIDE) [Concomitant]
  4. ASPIRIN [Concomitant]
  5. ALOSITOL (ALLOPURINOL) (ALLOPURINOL) [Concomitant]
  6. ARGAMATE (CALCIUM POLYSTYRENE SULFONATE) (CALCIUM POLYSTYRENE SULFONATE) [Concomitant]
  7. ALOSENN (SENNA ALEXANDRINA) (SENNA ALEXANDRINA) [Concomitant]
  8. FERROMIA (FERROUS CITRATE) (FERROUS CITRATE) [Concomitant]
  9. JUSO (SODIUM BICARBONATE) (SODIUM BICARBONATE) [Concomitant]
  10. CRAVIT (LEVOFLOXACIN) (EYE DROPS) (LEVOFLOXACIN) [Concomitant]
  11. HUMULIN R (INSULIN HUMAN) (INJECTION) (INSULIN HUMAN) [Concomitant]

REACTIONS (3)
  - Hypotension [None]
  - Nasopharyngitis [None]
  - Renal impairment [None]
